FAERS Safety Report 9634043 (Version 1)
Quarter: 2013Q4

REPORT INFORMATION
  Report Type: Spontaneous
  Country: NO (occurrence: NO)
  Receive Date: 20131021
  Receipt Date: 20131021
  Transmission Date: 20140711
  Serious: Yes (Hospitalization, Other)
  Sender: FDA-Public Use
  Company Number: NO-009507513-1310NOR006900

PATIENT
  Age: 54 Year
  Sex: Male

DRUGS (4)
  1. REBETOL [Suspect]
     Indication: HEPATITIS C
     Dosage: DOSAGE FORM: UNSPECIFIED
     Route: 048
     Dates: start: 20130417
  2. TELAPREVIR [Suspect]
     Indication: HEPATITIS C
     Dosage: 3 TABLETS X 2
     Route: 065
     Dates: start: 20130522, end: 20130812
  3. PEGASYS [Suspect]
     Indication: HEPATITIS C
     Dosage: DOSAGE FORM: UNSPECIFIED
     Route: 065
     Dates: start: 20130417
  4. DIOVAN [Concomitant]
     Indication: HYPERTENSION

REACTIONS (1)
  - Rash [Recovering/Resolving]
